FAERS Safety Report 5480410-4 (Version None)
Quarter: 2007Q4

REPORT INFORMATION
  Report Type: 
  Country: None (occurrence: None)
  Receive Date: 20071004
  Receipt Date: 20071004
  Transmission Date: 20080405
  Serious: Yes (Hospitalization)
  Sender: FDA-Public Use
  Company Number: None

PATIENT
  Age: 47 Year
  Sex: Female
  Weight: 84 kg

DRUGS (1)
  1. CLOLAR [Suspect]
     Indication: ACUTE MYELOID LEUKAEMIA RECURRENT
     Dosage: 81MG  QD X5  DAYS  IV
     Route: 042
     Dates: start: 20070821, end: 20070827

REACTIONS (10)
  - ACUTE MYELOID LEUKAEMIA RECURRENT [None]
  - BLOOD CULTURE POSITIVE [None]
  - CANDIDIASIS [None]
  - EJECTION FRACTION DECREASED [None]
  - FEBRILE NEUTROPENIA [None]
  - HYPERBILIRUBINAEMIA [None]
  - NEPHROTIC SYNDROME [None]
  - RENAL FAILURE [None]
  - RESPIRATORY DISTRESS [None]
  - TRANSAMINASES INCREASED [None]
